FAERS Safety Report 7492582-0 (Version None)
Quarter: 2011Q2

REPORT INFORMATION
  Report Type: 
  Country: None (occurrence: None)
  Receive Date: 20110519
  Receipt Date: 20110421
  Transmission Date: 20111010
  Serious: No
  Sender: FDA-Public Use
  Company Number: US-BAYER-2011-035485

PATIENT
  Sex: Female

DRUGS (5)
  1. ALEVE (CAPLET) [Suspect]
     Indication: BACK PAIN
     Dosage: 2 DF, QD
     Route: 048
  2. EVOXAC [Concomitant]
  3. HYDROXYUREA [Concomitant]
  4. DOXYCYCLINE [Concomitant]
  5. LEVOPROPYLHEXEDRINE [Concomitant]

REACTIONS (1)
  - TINNITUS [None]
